FAERS Safety Report 8731493 (Version 26)
Quarter: 2014Q3

REPORT INFORMATION
  Report Type: Spontaneous
  Country: US (occurrence: US)
  Receive Date: 20120820
  Receipt Date: 20140820
  Transmission Date: 20150326
  Serious: Yes (Death, Other)
  Sender: FDA-Public Use
  Company Number: PHEH2012US016145

PATIENT
  Age: 61 Year
  Sex: Male

DRUGS (19)
  1. AREDIA [Suspect]
     Active Substance: PAMIDRONATE DISODIUM
     Dosage: UNK UKN, UNK
     Route: 042
  2. LYRICA [Concomitant]
     Active Substance: PREGABALIN
  3. LISINOPRIL. [Concomitant]
     Active Substance: LISINOPRIL
  4. FLAGYL [Concomitant]
     Active Substance: METRONIDAZOLE\METRONIDAZOLE HYDROCHLORIDE
  5. DIPHENHYDRAMINE [Concomitant]
     Active Substance: DIPHENHYDRAMINE
  6. ZOMETA [Suspect]
     Active Substance: ZOLEDRONIC ACID
     Indication: PLASMA CELL MYELOMA
     Dosage: 4 MG, QMO
     Route: 042
     Dates: start: 2006
  7. TAMIFLU (OSELTAMIVIR) [Concomitant]
  8. PREDNISOLONE. [Concomitant]
     Active Substance: PREDNISOLONE
  9. ACETAMINOPHEN. [Concomitant]
     Active Substance: ACETAMINOPHEN
  10. GRANISETRON HYDROCHLORIDE. [Concomitant]
     Active Substance: GRANISETRON HYDROCHLORIDE
  11. LOMOTIL [Concomitant]
     Active Substance: ATROPINE SULFATE\DIPHENOXYLATE HYDROCHLORIDE
  12. ZEGERID [Concomitant]
     Active Substance: OMEPRAZOLE\SODIUM BICARBONATE
  13. DEXAMETHASONE. [Concomitant]
     Active Substance: DEXAMETHASONE
  14. ATIVAN [Concomitant]
     Active Substance: LORAZEPAM
  15. MEDROL [Concomitant]
     Active Substance: METHYLPREDNISOLONE
  16. ZOMETA [Suspect]
     Active Substance: ZOLEDRONIC ACID
     Dosage: 4 MG
     Route: 042
     Dates: start: 20091027, end: 20100827
  17. RANITIDINE [Concomitant]
     Active Substance: RANITIDINE\RANITIDINE HYDROCHLORIDE
  18. ZOMETA [Suspect]
     Active Substance: ZOLEDRONIC ACID
     Dosage: UNK UKN, UNK
     Route: 042
     Dates: end: 20101226
  19. HYDROCODONE [Concomitant]
     Active Substance: HYDROCODONE

REACTIONS (153)
  - Haemorrhoids [Unknown]
  - Duodenitis [Unknown]
  - Metaplasia [Unknown]
  - Renal disorder [Unknown]
  - Intervertebral disc degeneration [Unknown]
  - Hypogonadism [Unknown]
  - Joint stiffness [Unknown]
  - Pulmonary granuloma [Unknown]
  - Plasmacytosis [Unknown]
  - Pneumonia pneumococcal [Unknown]
  - Musculoskeletal pain [Unknown]
  - Gait disturbance [Unknown]
  - Dyspnoea [Unknown]
  - Osteonecrosis of jaw [Unknown]
  - Intervertebral disc protrusion [Unknown]
  - Toothache [Unknown]
  - Muscle spasms [Unknown]
  - Pneumonia [Recovered/Resolved]
  - Hiatus hernia [Unknown]
  - Intervertebral disc disorder [Unknown]
  - Hypertension [Unknown]
  - Coronary artery disease [Unknown]
  - Lumbar spinal stenosis [Unknown]
  - Cardiac murmur [Unknown]
  - Acute myeloid leukaemia [Unknown]
  - Hypovolaemia [Unknown]
  - Pleural fibrosis [Unknown]
  - Altered state of consciousness [Unknown]
  - Mobility decreased [Unknown]
  - Osteolysis [Unknown]
  - Rales [Unknown]
  - Pyrexia [Unknown]
  - Compression fracture [Unknown]
  - Primary sequestrum [Unknown]
  - Exposed bone in jaw [Unknown]
  - Oedema mouth [Unknown]
  - Depression [Unknown]
  - Tooth loss [Unknown]
  - Malignant neoplasm progression [Unknown]
  - Bone fragmentation [Unknown]
  - Wound dehiscence [Unknown]
  - Injury [Unknown]
  - Malignant melanoma [Unknown]
  - Radiculitis lumbosacral [Unknown]
  - Testicular atrophy [Unknown]
  - Prostatic obstruction [Unknown]
  - Neuralgia [Unknown]
  - Aortic arteriosclerosis [Unknown]
  - Vomiting [Unknown]
  - Oesophagitis [Unknown]
  - Weight decreased [Recovered/Resolved]
  - Pain in jaw [Unknown]
  - Hypogammaglobulinaemia [Unknown]
  - Bone pain [Unknown]
  - Periodontal disease [Unknown]
  - Osteomyelitis [Unknown]
  - Atelectasis [Unknown]
  - Anxiety [Unknown]
  - Large intestine polyp [Unknown]
  - Gastrointestinal haemorrhage [Unknown]
  - Paraesthesia oral [Unknown]
  - Amnesia [Unknown]
  - Anaemia [Unknown]
  - Vision blurred [Unknown]
  - Presbyopia [Unknown]
  - Metastases to spine [Unknown]
  - Erectile dysfunction [Unknown]
  - Deformity [Unknown]
  - Disability [Unknown]
  - Cough [Unknown]
  - Musculoskeletal stiffness [Unknown]
  - Death [Fatal]
  - Discomfort [Unknown]
  - Sinus congestion [Unknown]
  - Infection [Unknown]
  - Gingival pain [Unknown]
  - Bone lesion [Unknown]
  - Urinary tract infection [Unknown]
  - Gastritis [Unknown]
  - Obstruction gastric [Unknown]
  - Dental caries [Unknown]
  - Chronic obstructive pulmonary disease [Unknown]
  - Jaw cyst [Unknown]
  - Osteopenia [Unknown]
  - Pulmonary fibrosis [Unknown]
  - Osteoarthritis [Unknown]
  - Joint dislocation [Unknown]
  - Rotator cuff syndrome [Unknown]
  - Second primary malignancy [Unknown]
  - Confusional state [Unknown]
  - Oropharyngeal pain [Unknown]
  - Back pain [Unknown]
  - Hiccups [Unknown]
  - Joint swelling [Unknown]
  - Candida infection [Unknown]
  - Bronchitis [Unknown]
  - Plasma cell myeloma [Unknown]
  - Monoclonal gammopathy [Unknown]
  - Kyphosis [Unknown]
  - Sinusitis [Unknown]
  - Dehydration [Unknown]
  - Pancytopenia [Unknown]
  - Osteosclerosis [Unknown]
  - Fall [Unknown]
  - Rib deformity [Unknown]
  - Mental impairment [Unknown]
  - Dysarthria [Unknown]
  - Benign prostatic hyperplasia [Unknown]
  - Wheezing [Unknown]
  - Pruritus [Unknown]
  - Fatigue [Unknown]
  - Diarrhoea [Recovered/Resolved]
  - Chest pain [Unknown]
  - Asthenia [Unknown]
  - Oedema peripheral [Unknown]
  - Swelling [Unknown]
  - Pulmonary mass [Unknown]
  - Ear infection [Unknown]
  - Hydrocele [Unknown]
  - Hypermetropia [Unknown]
  - Bone cancer [Unknown]
  - Balance disorder [Unknown]
  - Aortic dilatation [Unknown]
  - Pulmonary calcification [Unknown]
  - Anhedonia [Unknown]
  - Tachycardia [Unknown]
  - Dysphagia [Unknown]
  - Sinus bradycardia [Unknown]
  - Constipation [Unknown]
  - Rib fracture [Recovering/Resolving]
  - Thrombocytopenia [Recovered/Resolved]
  - Swelling face [Unknown]
  - Spinal osteoarthritis [Unknown]
  - Bone cyst [Unknown]
  - Insomnia [Unknown]
  - Gastric ulcer [Unknown]
  - Loose tooth [Unknown]
  - Emphysema [Unknown]
  - Radiculopathy [Unknown]
  - Lung infiltration [Unknown]
  - Vascular calcification [Unknown]
  - Arteriosclerosis [Unknown]
  - Bone swelling [Unknown]
  - Astigmatism [Unknown]
  - Myelopathy [Unknown]
  - Somnolence [Unknown]
  - Emotional distress [Unknown]
  - Rhinorrhoea [Unknown]
  - Nausea [Unknown]
  - Abdominal pain [Unknown]
  - Arthralgia [Unknown]
  - Hypoaesthesia [Unknown]
  - Dyspnoea exertional [Unknown]

NARRATIVE: CASE EVENT DATE: 201008
